FAERS Safety Report 6329288-7 (Version None)
Quarter: 2009Q3

REPORT INFORMATION
  Report Type: 
  Country: None (occurrence: None)
  Receive Date: 20090824
  Receipt Date: 20090824
  Transmission Date: 20100115
  Serious: Yes (Other)
  Sender: FDA-Public Use
  Company Number: None

PATIENT
  Age: 27 Year
  Sex: Female
  Weight: 61.2356 kg

DRUGS (2)
  1. CYMBALTA [Suspect]
     Indication: DEPRESSION
     Dosage: 60 MG ONCE PER DAY PO
     Route: 048
  2. CYMBALTA [Suspect]
     Indication: DEPRESSION
     Dosage: 30 MG ONCE PER DAY PO
     Route: 048
     Dates: start: 20090720, end: 20090820

REACTIONS (5)
  - FEELING ABNORMAL [None]
  - FUNGAL INFECTION [None]
  - HEADACHE [None]
  - NASAL DISCOMFORT [None]
  - PARAESTHESIA [None]
